FAERS Safety Report 4836479-0 (Version None)
Quarter: 2005Q4

REPORT INFORMATION
  Report Type: 
  Country: None (occurrence: None)
  Receive Date: 20051123
  Receipt Date: 20051012
  Transmission Date: 20060501
  Serious: Yes (Life-Threatening, Hospitalization)
  Sender: FDA-Public Use
  Company Number: PHBS2005JP15249

PATIENT
  Age: 68 Year
  Sex: Female
  Weight: 64 kg

DRUGS (4)
  1. VOLTAREN [Suspect]
     Indication: BACK PAIN
     Dosage: 25 MG/DAY
     Route: 054
     Dates: start: 20051007, end: 20051007
  2. AMARYL [Concomitant]
     Indication: DIABETES MELLITUS
     Dosage: 4 MG/DAY
     Route: 048
     Dates: end: 20051007
  3. MEVALOTIN [Concomitant]
     Indication: HYPERCHOLESTEROLAEMIA
     Dosage: 10 MG/DAY
     Dates: end: 20051007
  4. OLMETEC [Concomitant]
     Indication: HYPERTENSION
     Dosage: 20 MG/DAY
     Route: 048
     Dates: end: 20051007

REACTIONS (12)
  - ANAPHYLACTIC SHOCK [None]
  - BLOOD GLUCOSE INCREASED [None]
  - BLOOD IMMUNOGLOBULIN E INCREASED [None]
  - BLOOD PRESSURE DECREASED [None]
  - CHEST PAIN [None]
  - DYSPNOEA [None]
  - ELECTROCARDIOGRAM ST SEGMENT ELEVATION [None]
  - GENERALISED ERYTHEMA [None]
  - LYMPHOCYTE STIMULATION TEST POSITIVE [None]
  - PRURITUS [None]
  - SOMNOLENCE [None]
  - WHITE BLOOD CELL COUNT INCREASED [None]
